FAERS Safety Report 7513836-5 (Version None)
Quarter: 2011Q2

REPORT INFORMATION
  Report Type: 
  Country: None (occurrence: None)
  Receive Date: 20110531
  Receipt Date: 20110517
  Transmission Date: 20111010
  Serious: Yes (Hospitalization, Other)
  Sender: FDA-Public Use
  Company Number: PHHY2011DE43696

PATIENT

DRUGS (10)
  1. LEVOTHYROXINE SODIUM [Concomitant]
     Dosage: 50 UG, DAY
  2. ASPIRIN [Concomitant]
  3. AMLODIPINE [Concomitant]
  4. FENTANYL [Concomitant]
  5. PANTOPRAZOLE [Concomitant]
  6. ZOLEDRONIC ACID [Suspect]
     Route: 065
  7. VITAMIN D [Concomitant]
     Dosage: 1000 IU, DAY
  8. HYDROCORTISONE [Concomitant]
     Dosage: 30 MG, DAY
  9. LEVETIRACETAM [Concomitant]
     Dosage: 3 G, DAY
  10. CALCIUM CARBONATE [Concomitant]
     Dosage: 1 G, DAY

REACTIONS (3)
  - PYREXIA [None]
  - FEBRILE CONVULSION [None]
  - LOSS OF CONSCIOUSNESS [None]
